FAERS Safety Report 20668644 (Version 1)
Quarter: 2022Q2

REPORT INFORMATION
  Report Type: Spontaneous
  Country: US (occurrence: US)
  Receive Date: 20220404
  Receipt Date: 20220404
  Transmission Date: 20220720
  Serious: No
  Sender: FDA-Public Use
  Company Number: US-GALDERMA-US2022003445

PATIENT

DRUGS (6)
  1. PROACTIV MD ADAPALENE ACNE TREATMENT [Suspect]
     Active Substance: ADAPALENE
     Indication: Acne
     Dosage: 1 DOSAGE FORM, TWICE
     Route: 061
     Dates: start: 20220314, end: 20220316
  2. PROACTIV MD ADAPALENE ACNE TREATMENT [Suspect]
     Active Substance: ADAPALENE
     Indication: Seborrhoea
  3. Proactiv MD Ultra Gentle Cleanser [Concomitant]
     Indication: Acne
     Dosage: 1 DOSAGE FORM, BIW, 2 OR MORE TIMES A WEEK
     Route: 061
     Dates: start: 20220314, end: 20220316
  4. Proactiv MD Ultra Gentle Cleanser [Concomitant]
     Indication: Seborrhoea
  5. Proactiv MD Ultra Hydrating Moisturizer [Concomitant]
     Indication: Acne
     Dosage: 1 DOSAGE FORM, BIW, 2 OR MORE TIMES A WEEK
     Route: 061
     Dates: start: 20220314, end: 20220316
  6. Proactiv MD Ultra Hydrating Moisturizer [Concomitant]
     Indication: Seborrhoea

REACTIONS (1)
  - Rash [Recovered/Resolved]

NARRATIVE: CASE EVENT DATE: 20220316
